FAERS Safety Report 15050314 (Version 1)
Quarter: 2018Q2

REPORT INFORMATION
  Report Type: Spontaneous
  Country: US (occurrence: US)
  Receive Date: 20180601
  Receipt Date: 20180601
  Transmission Date: 20180711
  Serious: No
  Sender: FDA-Public Use
  Company Number: None

PATIENT
  Sex: Female
  Weight: 104.33 kg

DRUGS (4)
  1. RASUVO [Suspect]
     Active Substance: METHOTREXATE SODIUM
     Indication: DRUG THERAPY
  2. RASUVO [Suspect]
     Active Substance: METHOTREXATE SODIUM
     Indication: RHEUMATOID ARTHRITIS
     Route: 058
     Dates: start: 201805
  3. RASUVO [Suspect]
     Active Substance: METHOTREXATE SODIUM
     Indication: ARTHRALGIA
  4. RASUVO [Suspect]
     Active Substance: METHOTREXATE SODIUM
     Indication: GRANULOMATOSIS WITH POLYANGIITIS

REACTIONS (2)
  - Drug dose omission [None]
  - Upper limb fracture [None]
